FAERS Safety Report 6318939-9 (Version None)
Quarter: 2009Q3

REPORT INFORMATION
  Report Type: 
  Country: None (occurrence: None)
  Receive Date: 20090821
  Receipt Date: 20081118
  Transmission Date: 20100115
  Serious: No
  Sender: FDA-Public Use
  Company Number: US-ABBOTT-08P-163-0488459-00

PATIENT
  Sex: Female
  Weight: 74.91 kg

DRUGS (13)
  1. NIASPAN [Suspect]
     Indication: BLOOD CHOLESTEROL
     Route: 048
     Dates: start: 20081111, end: 20081117
  2. NEXIUM [Concomitant]
     Indication: GASTRITIS PROPHYLAXIS
     Route: 048
  3. LEVOTHYROXINE SODIUM [Concomitant]
     Indication: THYROID DISORDER
     Route: 048
  4. LEVOTHYROXINE SODIUM [Concomitant]
     Route: 048
  5. ESTRODIL [Concomitant]
     Indication: HORMONE REPLACEMENT THERAPY
     Route: 048
  6. MEDROXY PROGESTERONT [Concomitant]
     Indication: HORMONE REPLACEMENT THERAPY
     Route: 048
  7. HYDROCHLORATHIAZIDE [Concomitant]
     Indication: BLOOD PRESSURE
     Route: 048
  8. MYACLACIN [Concomitant]
     Indication: BONE DISORDER
  9. RHINOCORT [Concomitant]
     Indication: DRUG USE FOR UNKNOWN INDICATION
  10. VITAMIN E [Concomitant]
     Indication: DRUG USE FOR UNKNOWN INDICATION
     Route: 048
  11. CYANOCOBALAMIN [Concomitant]
     Indication: DRUG USE FOR UNKNOWN INDICATION
     Dosage: DAILY
  12. CENTRUM SILVER [Concomitant]
     Indication: DRUG USE FOR UNKNOWN INDICATION
  13. ASPIRIN [Concomitant]
     Indication: DRUG USE FOR UNKNOWN INDICATION

REACTIONS (10)
  - ABDOMINAL DISTENSION [None]
  - ASTHENIA [None]
  - DYSPNOEA [None]
  - FLUSHING [None]
  - HYPERHIDROSIS [None]
  - IRRITABILITY [None]
  - MENTAL IMPAIRMENT [None]
  - MUSCULOSKELETAL STIFFNESS [None]
  - PALPITATIONS [None]
  - SOMNOLENCE [None]
